FAERS Safety Report 10335982 (Version 1)
Quarter: 2014Q3

REPORT INFORMATION
  Report Type: Report from Study
  Country: IT (occurrence: IT)
  Receive Date: 20140723
  Receipt Date: 20140723
  Transmission Date: 20150326
  Serious: Yes (Hospitalization, Other)
  Sender: FDA-Public Use
  Company Number: IT-ASTRAZENECA-2014SE50342

PATIENT
  Age: 75 Year
  Sex: Male

DRUGS (3)
  1. STUDY PROCEDURE [Suspect]
     Active Substance: INVESTIGATIONAL PRODUCT
     Indication: ACUTE CORONARY SYNDROME
     Route: 065
  2. TICAGRELOR [Suspect]
     Active Substance: TICAGRELOR
     Indication: ACUTE CORONARY SYNDROME
     Route: 048
     Dates: start: 20130927
  3. ASA (NON-AZ PRODUCT) [Suspect]
     Active Substance: ASPIRIN
     Indication: ACUTE CORONARY SYNDROME
     Route: 048

REACTIONS (2)
  - Angina unstable [Recovered/Resolved]
  - Coronary artery restenosis [Recovered/Resolved]

NARRATIVE: CASE EVENT DATE: 20140322
